FAERS Safety Report 16153303 (Version 1)
Quarter: 2019Q2

REPORT INFORMATION
  Report Type: Report from Study
  Country: US (occurrence: US)
  Receive Date: 20190403
  Receipt Date: 20190403
  Transmission Date: 20190711
  Serious: Yes (Death, Life-Threatening, Other)
  Sender: FDA-Public Use
  Company Number: PHHY2019US074576

PATIENT
  Age: 15 Year
  Sex: Male

DRUGS (1)
  1. KYMRIAH [Suspect]
     Active Substance: TISAGENLECLEUCEL
     Indication: PRODUCT USED FOR UNKNOWN INDICATION
     Dosage: UNK, ONCE/SINGLE
     Route: 041
     Dates: start: 2018

REACTIONS (4)
  - Clostridium difficile infection [Unknown]
  - Death [Fatal]
  - Neurotoxicity [Recovered/Resolved]
  - Pulmonary toxicity [Unknown]
